FAERS Safety Report 26115583 (Version 1)
Quarter: 2025Q4

REPORT INFORMATION
  Report Type: Report from Study
  Country: CA (occurrence: CA)
  Receive Date: 20251203
  Receipt Date: 20251203
  Transmission Date: 20260117
  Serious: Yes (Other)
  Sender: ABBVIE
  Company Number: CA-ABBVIE-6573216

PATIENT
  Sex: Female

DRUGS (1)
  1. SKYRIZI [Suspect]
     Active Substance: RISANKIZUMAB-RZAA
     Indication: Crohn^s disease
     Dosage: 360MG/2.4ML?INJECT THE CONTENTS OF 1 CARTRIDGE (360MG)
     Route: 058

REACTIONS (3)
  - Hernia [Recovering/Resolving]
  - Crohn^s disease [Recovering/Resolving]
  - Colitis [Recovering/Resolving]
